FAERS Safety Report 6584483-7 (Version None)
Quarter: 2010Q1

REPORT INFORMATION
  Report Type: 
  Country: None (occurrence: None)
  Receive Date: 20100213
  Receipt Date: 20100213
  Transmission Date: 20100710
  Serious: Yes (Life-Threatening, Hospitalization)
  Sender: FDA-Public Use
  Company Number: None

PATIENT
  Sex: Male
  Weight: 103.4201 kg

DRUGS (18)
  1. PEGASYS [Suspect]
     Indication: HEPATITIS C
     Dosage: 180 MCG PREFILLED SYRINGE WEEKY SQ
     Route: 058
     Dates: start: 20091229, end: 20100129
  2. RIBAVIRIN [Suspect]
     Indication: HEPATITIS C
     Dosage: 1400 MG DAILY PO
     Route: 048
     Dates: start: 20091229, end: 20100129
  3. ELAVIL [Concomitant]
  4. SEROQUEL [Concomitant]
  5. PHENERGAN HCL [Concomitant]
  6. WELCHOL [Concomitant]
  7. LOVAZA [Concomitant]
  8. LISINOPRIL [Concomitant]
  9. COREG [Concomitant]
  10. ALLOPURINOL [Concomitant]
  11. KALETRA [Concomitant]
  12. VIREAD [Concomitant]
  13. EMTRIVA [Concomitant]
  14. NITROGLYCERIN [Concomitant]
  15. ASPIRIN [Concomitant]
  16. CENTRUM WITH IRON [Concomitant]
  17. LEXAPRO [Concomitant]
  18. CELEXA [Concomitant]

REACTIONS (5)
  - ABNORMAL BEHAVIOUR [None]
  - DRUG ABUSE [None]
  - MENTAL IMPAIRMENT [None]
  - SELF-MEDICATION [None]
  - SUICIDE ATTEMPT [None]
